FAERS Safety Report 9414370 (Version 4)
Quarter: 2014Q2

REPORT INFORMATION
  Report Type: Report from Study
  Country: CA (occurrence: CA)
  Receive Date: 20130723
  Receipt Date: 20140604
  Transmission Date: 20141212
  Serious: Yes (Other)
  Sender: FDA-Public Use
  Company Number: CA-ROCHE-1250530

PATIENT
  Age: 46 Year
  Sex: Female
  Weight: 97 kg

DRUGS (13)
  1. ACTEMRA [Suspect]
     Indication: RHEUMATOID ARTHRITIS
     Dosage: LAST DOSE : 11/SEP/2013.
     Route: 042
     Dates: start: 20130507
  2. ACTEMRA [Suspect]
     Route: 042
     Dates: start: 20140506
  3. PREDNISONE [Concomitant]
  4. OXYCODONE [Concomitant]
  5. ATACAND [Concomitant]
  6. POTASSIUM CHLORIDE [Concomitant]
  7. BISOPROLOL [Concomitant]
  8. EFFEXOR [Concomitant]
  9. ROSUVASTATIN CALCIUM [Concomitant]
  10. ZANTAC [Concomitant]
  11. RESTORIL (CANADA) [Concomitant]
  12. CELEBREX [Concomitant]
  13. XANAX [Concomitant]

REACTIONS (9)
  - Menstrual disorder [Not Recovered/Not Resolved]
  - Influenza [Recovered/Resolved]
  - Ingrowing nail [Recovered/Resolved]
  - Infection [Recovered/Resolved]
  - Oropharyngeal pain [Not Recovered/Not Resolved]
  - Cough [Not Recovered/Not Resolved]
  - Pyrexia [Not Recovered/Not Resolved]
  - Chills [Not Recovered/Not Resolved]
  - Drug ineffective [Unknown]
